FAERS Safety Report 13590852 (Version 3)
Quarter: 2017Q4

REPORT INFORMATION
  Report Type: Spontaneous
  Country: FR (occurrence: FR)
  Receive Date: 20170530
  Receipt Date: 20171116
  Transmission Date: 20180320
  Serious: Yes (Life-Threatening, Hospitalization, Other)
  Sender: FDA-Public Use
  Company Number: FR-SUN PHARMACEUTICAL INDUSTRIES LTD-2017R1-141822

PATIENT
  Age: 54 Year
  Sex: Male

DRUGS (6)
  1. PREDNISONE. [Suspect]
     Active Substance: PREDNISONE
     Dosage: 5 MG, DAILY
     Route: 065
  2. MYCOPHENOLATE MOFETIL. [Suspect]
     Active Substance: MYCOPHENOLATE MOFETIL
     Indication: IMMUNOSUPPRESSANT DRUG THERAPY
     Route: 065
  3. TACROLIMUS. [Suspect]
     Active Substance: TACROLIMUS
     Indication: IMMUNOSUPPRESSANT DRUG THERAPY
     Route: 065
  4. PREDNISONE. [Suspect]
     Active Substance: PREDNISONE
     Indication: IMMUNOSUPPRESSANT DRUG THERAPY
     Dosage: PROGRESSIVELY TAPERED
     Route: 065
  5. INSULIN [Concomitant]
     Active Substance: INSULIN NOS
     Indication: DIABETES MELLITUS
     Route: 065
  6. PREDNISONE. [Suspect]
     Active Substance: PREDNISONE
     Dosage: 20 MG, DAILY
     Route: 065

REACTIONS (4)
  - Listeriosis [Recovered/Resolved]
  - Chromoblastomycosis [Recovered/Resolved]
  - Abscess limb [Recovered/Resolved]
  - Brain abscess [Recovered/Resolved]
